FAERS Safety Report 5642922-X (Version None)
Quarter: 2008Q1

REPORT INFORMATION
  Report Type: 
  Country: None (occurrence: None)
  Receive Date: 20080228
  Receipt Date: 20080222
  Transmission Date: 20080703
  Serious: Yes (Death)
  Sender: FDA-Public Use
  Company Number: JP-JNJFOC-20080204465

PATIENT
  Age: 58 Year
  Sex: Male

DRUGS (8)
  1. LOPEMIN [Suspect]
     Indication: DIARRHOEA
     Route: 048
  2. LOPEMIN [Suspect]
     Indication: PYREXIA
     Route: 048
  3. LOPEMIN [Suspect]
     Indication: ABDOMINAL PAIN
     Route: 048
  4. CRAVIT [Suspect]
     Indication: DRUG USE FOR UNKNOWN INDICATION
  5. LOXONIN [Suspect]
     Indication: DRUG USE FOR UNKNOWN INDICATION
  6. ASTOMIN [Concomitant]
  7. COLIOPAN [Concomitant]
  8. TRIFLUID [Concomitant]

REACTIONS (1)
  - STEVENS-JOHNSON SYNDROME [None]
